FAERS Safety Report 6385523-0 (Version None)
Quarter: 2009Q4

REPORT INFORMATION
  Report Type: 
  Country: None (occurrence: None)
  Receive Date: 20091002
  Receipt Date: 20080910
  Transmission Date: 20100525
  Serious: Yes (Other)
  Sender: FDA-Public Use
  Company Number: US-ASTRAZENECA-2008UW18791

PATIENT
  Age: 776 Month
  Sex: Female
  Weight: 61.2 kg

DRUGS (7)
  1. ARIMIDEX [Suspect]
     Indication: BREAST CANCER
     Route: 048
     Dates: start: 20060101
  2. ADVAIR DISKUS 100/50 [Concomitant]
  3. ALBUTEROL [Concomitant]
     Dosage: PRN
  4. MULTI-VITAMIN [Concomitant]
  5. CALCIUM PLUS D [Concomitant]
  6. FISH OIL [Concomitant]
  7. DIGESTIVE ADVANTAGE OTC PRODUCT [Concomitant]
     Indication: IRRITABLE BOWEL SYNDROME

REACTIONS (4)
  - ARTHRITIS [None]
  - NEUROPATHY PERIPHERAL [None]
  - OSTEOARTHRITIS [None]
  - UPPER LIMB FRACTURE [None]
